FAERS Safety Report 9632215 (Version 1)
Quarter: 2013Q4

REPORT INFORMATION
  Report Type: Spontaneous
  Country: US (occurrence: None)
  Receive Date: 20131018
  Receipt Date: 20131018
  Transmission Date: 20140711
  Serious: Yes (Death, Life-Threatening)
  Sender: FDA-Public Use
  Company Number: None

PATIENT
  Age: 59 Year
  Sex: Female
  Weight: 77.11 kg

DRUGS (5)
  1. PROAIR [Suspect]
     Indication: BRONCHOSPASM
  2. PROAIR [Suspect]
     Indication: WHEEZING
  3. PROAIR HFA [Concomitant]
  4. NIACIN [Concomitant]
  5. MELATONIN [Concomitant]

REACTIONS (2)
  - Product formulation issue [None]
  - Asthma [None]
